FAERS Safety Report 19729132 (Version 6)
Quarter: 2022Q1

REPORT INFORMATION
  Report Type: Spontaneous
  Country: PL (occurrence: PL)
  Receive Date: 20210821
  Receipt Date: 20220107
  Transmission Date: 20220423
  Serious: Yes (Disabling, Other)
  Sender: FDA-Public Use
  Company Number: PL-RECORDATI-2021003055

PATIENT
  Age: 68 Year
  Sex: Female

DRUGS (14)
  1. ALPRAZOLAM [Interacting]
     Active Substance: ALPRAZOLAM
     Indication: Depression
     Dosage: 1 MILLIGRAM, ONCE A DAY (0.5 MILLIGRAM, BID SR)
     Route: 065
  2. PREGABALIN [Suspect]
     Active Substance: PREGABALIN
     Indication: Pain
     Dosage: UNK
     Route: 065
  3. METOPROLOL [Interacting]
     Active Substance: METOPROLOL
     Indication: Depression
     Dosage: 100 MILLIGRAM, ONCE A DAY (QD) (METOPROLOL ZERO-ORDER KINETICS (ZOK) 100 MG/D)
     Route: 065
  4. METOPROLOL [Interacting]
     Active Substance: METOPROLOL
     Indication: Palpitations
  5. CELECOXIB [Suspect]
     Active Substance: CELECOXIB
     Indication: Arthritis
     Dosage: 400 MILLIGRAM, ONCE A DAY (QD)
     Route: 065
  6. CELECOXIB [Suspect]
     Active Substance: CELECOXIB
     Indication: Inflammation
  7. CIPROFLOXACIN [Suspect]
     Active Substance: CIPROFLOXACIN
     Indication: Arthritis
     Dosage: 1000 MILLIGRAM, ONCE A DAY, (QD)
     Route: 048
  8. CIPROFLOXACIN [Suspect]
     Active Substance: CIPROFLOXACIN
     Indication: Arthritis infective
  9. CIPROFLOXACIN [Suspect]
     Active Substance: CIPROFLOXACIN
     Indication: Inflammation
  10. DULOXETINE [Interacting]
     Active Substance: DULOXETINE
     Indication: Depression
     Dosage: 60 MILLIGRAM, ONCE A DAY (QD)
     Route: 065
  11. DEXAMETHASONE [Suspect]
     Active Substance: DEXAMETHASONE
     Indication: Eye pain
     Dosage: UNK
     Route: 047
  12. ETORICOXIB [Suspect]
     Active Substance: ETORICOXIB
     Indication: Pain
     Dosage: UNK
     Route: 065
  13. GENTAMICIN [Suspect]
     Active Substance: GENTAMICIN
     Indication: Eye pain
     Dosage: UNK
     Route: 047
  14. BROMFENAC [Suspect]
     Active Substance: BROMFENAC SODIUM
     Indication: Eye pain
     Dosage: UNK
     Route: 047

REACTIONS (16)
  - Visual field defect [Recovered/Resolved]
  - Hallucination, visual [Recovered/Resolved]
  - Thermal burns of eye [Recovered/Resolved]
  - Drug level increased [Recovered/Resolved]
  - Drug interaction [Recovered/Resolved]
  - Eye pain [Recovered/Resolved]
  - Hyperhidrosis [Recovered/Resolved]
  - Eye irritation [Recovered/Resolved]
  - Drug ineffective [Recovered/Resolved]
  - Dyschromatopsia [Recovered/Resolved]
  - Visual impairment [Recovered/Resolved]
  - Excessive eye blinking [Recovered/Resolved]
  - Contraindicated product administered [Recovered/Resolved]
  - Headache [Unknown]
  - Vitreous floaters [Recovered/Resolved]
  - Eye disorder [Recovered/Resolved]
